FAERS Safety Report 16243079 (Version 1)
Quarter: 2019Q2

REPORT INFORMATION
  Report Type: Spontaneous
  Country: US (occurrence: US)
  Receive Date: 20190425
  Receipt Date: 20190425
  Transmission Date: 20190711
  Serious: Yes (Other)
  Sender: FDA-Public Use
  Company Number: None

PATIENT
  Sex: Male
  Weight: 61.6 kg

DRUGS (1)
  1. ELIQUIS [Suspect]
     Active Substance: APIXABAN
     Route: 048

REACTIONS (4)
  - Haematocrit decreased [None]
  - Haemoglobin decreased [None]
  - Drug monitoring procedure not performed [None]
  - Melaena [None]

NARRATIVE: CASE EVENT DATE: 20190425
